FAERS Safety Report 5844860-6 (Version None)
Quarter: 2008Q3

REPORT INFORMATION
  Report Type: 
  Country: None (occurrence: None)
  Receive Date: 20080812
  Receipt Date: 20080728
  Transmission Date: 20090109
  Serious: Yes (Hospitalization)
  Sender: FDA-Public Use
  Company Number: 2008BI019442

PATIENT
  Age: 29 Year
  Sex: Female

DRUGS (3)
  1. TYSABRI [Suspect]
     Indication: MULTIPLE SCLEROSIS
     Dosage: 300 MG; QM; IV, 300 MG, QM, IV
     Route: 042
     Dates: start: 20070820, end: 20071119
  2. TYSABRI [Suspect]
     Indication: MULTIPLE SCLEROSIS
     Dosage: 300 MG; QM; IV, 300 MG, QM, IV
     Route: 042
     Dates: start: 20080327
  3. AVONEX [Concomitant]

REACTIONS (4)
  - IMPETIGO [None]
  - OPPORTUNISTIC INFECTION [None]
  - RASH PUSTULAR [None]
  - STAPHYLOCOCCAL INFECTION [None]
